FAERS Safety Report 5958940-8 (Version None)
Quarter: 2008Q4

REPORT INFORMATION
  Report Type: 
  Country: None (occurrence: None)
  Receive Date: 20081112
  Receipt Date: 20081107
  Transmission Date: 20090506
  Serious: Yes (Other)
  Sender: FDA-Public Use
  Company Number: 200814094

PATIENT
  Age: 60 Year
  Sex: Female
  Weight: 49.8957 kg

DRUGS (12)
  1. VIVAGLOBIN [Suspect]
     Indication: HYPOGAMMAGLOBULINAEMIA
     Dosage: 4.8 G Q1W SC : 7.3 G Q1W SC : SC : SC : SC
     Route: 058
     Dates: start: 20061009, end: 20080401
  2. VIVAGLOBIN [Suspect]
     Indication: IMMUNOSUPPRESSION
     Dosage: 4.8 G Q1W SC : 7.3 G Q1W SC : SC : SC : SC
     Route: 058
     Dates: start: 20061009, end: 20080401
  3. VIVAGLOBIN [Suspect]
     Indication: HYPOGAMMAGLOBULINAEMIA
     Dosage: 4.8 G Q1W SC : 7.3 G Q1W SC : SC : SC : SC
     Route: 058
     Dates: start: 20080918, end: 20080918
  4. VIVAGLOBIN [Suspect]
     Indication: IMMUNOSUPPRESSION
     Dosage: 4.8 G Q1W SC : 7.3 G Q1W SC : SC : SC : SC
     Route: 058
     Dates: start: 20080918, end: 20080918
  5. VIVAGLOBIN [Suspect]
     Indication: HYPOGAMMAGLOBULINAEMIA
     Dosage: 4.8 G Q1W SC : 7.3 G Q1W SC : SC : SC : SC
     Route: 058
     Dates: start: 20080401
  6. VIVAGLOBIN [Suspect]
     Indication: IMMUNOSUPPRESSION
     Dosage: 4.8 G Q1W SC : 7.3 G Q1W SC : SC : SC : SC
     Route: 058
     Dates: start: 20080401
  7. PENICILLIN [Concomitant]
  8. ASPIRIN [Concomitant]
  9. PREDNISONE TAB [Concomitant]
  10. CELEBREX [Concomitant]
  11. SPORANOX [Concomitant]
  12. DIABETIC MEDICATION [Concomitant]

REACTIONS (8)
  - BACTERIAL INFECTION [None]
  - BURNING SENSATION [None]
  - FUNGAL INFECTION [None]
  - INFUSION SITE SWELLING [None]
  - MALAISE [None]
  - NASAL DISCOMFORT [None]
  - OROPHARYNGEAL PAIN [None]
  - SPUTUM CULTURE [None]
